FAERS Safety Report 11409634 (Version 2)
Quarter: 2015Q3

REPORT INFORMATION
  Report Type: Report from Study
  Country: US (occurrence: US)
  Receive Date: 20150824
  Receipt Date: 20150828
  Transmission Date: 20151125
  Serious: Yes (Hospitalization, Other)
  Sender: FDA-Public Use
  Company Number: US-ALEXION PHARMACEUTICALS INC.-A201503128

PATIENT

DRUGS (1)
  1. SOLIRIS [Suspect]
     Active Substance: ECULIZUMAB
     Indication: HAEMOLYTIC URAEMIC SYNDROME
     Dosage: UNK
     Route: 042
     Dates: start: 20150806, end: 20150806

REACTIONS (11)
  - Unevaluable event [Unknown]
  - Blood creatinine abnormal [Unknown]
  - Nausea [Not Recovered/Not Resolved]
  - Haemoglobin abnormal [Unknown]
  - Platelet count decreased [Unknown]
  - Blood lactate dehydrogenase abnormal [Unknown]
  - Headache [Unknown]
  - Blood creatinine increased [Unknown]
  - Vomiting [Not Recovered/Not Resolved]
  - Platelet count abnormal [Unknown]
  - Flank pain [Unknown]

NARRATIVE: CASE EVENT DATE: 201508
